FAERS Safety Report 17766128 (Version 1)
Quarter: 2020Q2

REPORT INFORMATION
  Report Type: Spontaneous
  Country: AU (occurrence: AU)
  Receive Date: 20200511
  Receipt Date: 20200511
  Transmission Date: 20200714
  Serious: Yes (Other)
  Sender: FDA-Public Use
  Company Number: AU-PFIZER INC-2020183495

PATIENT
  Age: 43 Year
  Sex: Female

DRUGS (2)
  1. MIFEPRISTONE [Concomitant]
     Active Substance: MIFEPRISTONE
     Indication: ABORTION SPONTANEOUS
     Dosage: UNK
  2. MISOPROSTOL. [Suspect]
     Active Substance: MISOPROSTOL
     Indication: ABORTION SPONTANEOUS
     Dosage: UNK

REACTIONS (3)
  - Uterine leiomyoma [Unknown]
  - Product use in unapproved indication [Unknown]
  - Off label use [Unknown]
